FAERS Safety Report 7022841-7 (Version None)
Quarter: 2010Q3

REPORT INFORMATION
  Report Type: 
  Country: None (occurrence: None)
  Receive Date: 20100930
  Receipt Date: 20100927
  Transmission Date: 20110219
  Serious: Yes (Life-Threatening)
  Sender: FDA-Public Use
  Company Number: B0676416A

PATIENT
  Age: 80 Year
  Sex: Female

DRUGS (6)
  1. CEFTAZIDIME [Suspect]
     Indication: PRODUCT USED FOR UNKNOWN INDICATION
     Route: 042
     Dates: start: 20100512
  2. VFEND [Suspect]
     Indication: CANDIDIASIS
     Route: 042
     Dates: start: 20100508, end: 20100526
  3. AMIODARONE [Concomitant]
     Indication: ATRIAL FIBRILLATION
     Route: 042
     Dates: start: 20100516
  4. NICARDIPINE HYDROCHLORIDE [Concomitant]
     Route: 042
     Dates: start: 20100520
  5. PROPRANOLOL [Concomitant]
     Route: 048
     Dates: start: 20100503
  6. HYDROXYZINE [Concomitant]
     Route: 042
     Dates: start: 20100520

REACTIONS (4)
  - ANAEMIA [None]
  - NEUTROPENIA [None]
  - PANCYTOPENIA [None]
  - THROMBOCYTOPENIA [None]
